FAERS Safety Report 9753309 (Version 1)
Quarter: 2013Q4

REPORT INFORMATION
  Report Type: Spontaneous
  Country: US (occurrence: US)
  Receive Date: 20131213
  Receipt Date: 20131213
  Transmission Date: 20140711
  Serious: No
  Sender: FDA-Public Use
  Company Number: US-PFIZER INC-2013353019

PATIENT
  Age: 83 Year
  Sex: Female
  Weight: 77.1 kg

DRUGS (2)
  1. ADVIL [Suspect]
     Indication: SLEEP DISORDER
     Dosage: 200 MG, DAILY AT NIGHT
  2. ALLOPURINOL [Concomitant]
     Indication: GOUT
     Dosage: 100 MG, DAILY

REACTIONS (2)
  - Off label use [Unknown]
  - Blood pressure increased [Unknown]
